FAERS Safety Report 6066978-8 (Version None)
Quarter: 2009Q1

REPORT INFORMATION
  Report Type: 
  Country: None (occurrence: None)
  Receive Date: 20090205
  Receipt Date: 20081027
  Transmission Date: 20090719
  Serious: No
  Sender: FDA-Public Use
  Company Number: US-ABBOTT-08P-163-0484307-00

PATIENT
  Sex: Female
  Weight: 50.394 kg

DRUGS (8)
  1. VICODIN [Suspect]
     Indication: DRUG USE FOR UNKNOWN INDICATION
  2. AMBIEN SR [Concomitant]
     Indication: INSOMNIA
     Route: 048
  3. BISELECT [Concomitant]
     Indication: HYPERTENSION
     Dosage: 2.5/6.25 MG
     Route: 048
     Dates: start: 20040101
  4. ESOMEPRAZOLE MAGNESIUM [Concomitant]
     Indication: IRRITABLE BOWEL SYNDROME
     Route: 048
  5. HYOSCYAMINE SULFATE [Concomitant]
     Indication: IRRITABLE BOWEL SYNDROME
     Route: 048
  6. BELLADONAA [Concomitant]
     Indication: PAIN
     Route: 048
  7. ESTRADIOL [Concomitant]
     Indication: HORMONE REPLACEMENT THERAPY
     Route: 048
  8. CAL-MAX [Concomitant]
     Indication: MINERAL SUPPLEMENTATION
     Route: 048

REACTIONS (3)
  - HEADACHE [None]
  - HYPERSENSITIVITY [None]
  - NAUSEA [None]
